FAERS Safety Report 8377279-7 (Version None)
Quarter: 2012Q2

REPORT INFORMATION
  Report Type: 
  Country: None (occurrence: None)
  Receive Date: 20120522
  Receipt Date: 20120517
  Transmission Date: 20120825
  Serious: Yes (Other)
  Sender: FDA-Public Use
  Company Number: US-PFIZER INC-2012108763

PATIENT
  Sex: Male
  Weight: 88.4 kg

DRUGS (7)
  1. SIMVASTATIN [Concomitant]
     Indication: BLOOD CHOLESTEROL INCREASED
     Dosage: 20 MG, DAILY
  2. DIGOXIN [Concomitant]
     Indication: CARDIAC DISORDER
     Dosage: 0.25 MG, DAILY
  3. SUTENT [Suspect]
     Indication: NEOPLASM MALIGNANT
     Dosage: 50 MG, DAILY
     Dates: start: 20111201
  4. METOPROLOL [Concomitant]
     Indication: HYPERTENSION
     Dosage: 50 MG, 2X/DAY
  5. METFORMIN [Concomitant]
     Indication: DIABETES MELLITUS
     Dosage: 500 MG, DAILY
  6. PLAVIX [Concomitant]
     Dosage: UNK
  7. SUTENT [Suspect]
     Indication: RENAL CELL CARCINOMA
     Dosage: 25 MG, (UNKNOWN FREQUENCY)
     Dates: start: 20111212

REACTIONS (6)
  - LYMPHADENOPATHY [None]
  - RASH [None]
  - MALAISE [None]
  - TESTICULAR SWELLING [None]
  - CARDIAC DISORDER [None]
  - TESTICULAR PAIN [None]
